FAERS Safety Report 5545907-7 (Version None)
Quarter: 2007Q4

REPORT INFORMATION
  Report Type: 
  Country: None (occurrence: None)
  Receive Date: 20071211
  Receipt Date: 20071106
  Transmission Date: 20080405
  Serious: No
  Sender: FDA-Public Use
  Company Number: US-ASTRAZENECA-2007UW25866

PATIENT
  Age: 77 Year
  Sex: Female

DRUGS (3)
  1. SYMBICORT [Suspect]
     Dosage: 160/4.5 UG
     Route: 055
     Dates: start: 20071022, end: 20071029
  2. NEXIUM [Concomitant]
     Route: 048
  3. SYNTHROID [Concomitant]

REACTIONS (1)
  - PAIN [None]
